FAERS Safety Report 7935848-X (Version None)
Quarter: 2011Q4

REPORT INFORMATION
  Report Type: 
  Country: None (occurrence: None)
  Receive Date: 20111121
  Receipt Date: 20111107
  Transmission Date: 20120403
  Serious: Yes (Life-Threatening, Hospitalization)
  Sender: FDA-Public Use
  Company Number: 2011AP002007

PATIENT
  Age: 79 Year
  Sex: Female

DRUGS (16)
  1. ADCAL D3 (LEKOVIT CA) [Concomitant]
  2. OMEPRAZOLE [Concomitant]
  3. CITALOPRAM HYDROBROMIDE [Concomitant]
  4. ACETAMINOPHEN W/ CODEINE [Concomitant]
  5. PERINDOPRIL ERBUMINE [Concomitant]
  6. TRAVOPROST (TRAVOPROST) [Concomitant]
  7. ASPIRIN [Concomitant]
  8. ZOLPIDEM [Concomitant]
  9. BENDROFLUMETHIAZIDE (BENDROFLUMETHIAZIDE) [Concomitant]
  10. ACETAMINOPHEN [Concomitant]
  11. LAMOTRIGINE [Suspect]
     Indication: NERVOUS SYSTEM DISORDER
     Dosage: 25 MG;PO;BID ; 50 MG;PO;BID
     Route: 048
     Dates: start: 20110807, end: 20110810
  12. LAMOTRIGINE [Suspect]
     Indication: CONVULSION
     Dosage: 25 MG;PO;BID ; 50 MG;PO;BID
     Route: 048
     Dates: start: 20110807, end: 20110810
  13. LAMOTRIGINE [Suspect]
     Indication: NERVOUS SYSTEM DISORDER
     Dosage: 25 MG;PO;BID ; 50 MG;PO;BID
     Route: 048
     Dates: start: 20110811, end: 20110822
  14. LAMOTRIGINE [Suspect]
     Indication: CONVULSION
     Dosage: 25 MG;PO;BID ; 50 MG;PO;BID
     Route: 048
     Dates: start: 20110811, end: 20110822
  15. BISOPROLOL FUMARATE [Concomitant]
  16. PHENYTOIN [Concomitant]

REACTIONS (11)
  - NEUTROPENIC SEPSIS [None]
  - SKIN WARM [None]
  - NEUTROPHIL COUNT DECREASED [None]
  - PLATELET COUNT DECREASED [None]
  - DRUG LEVEL INCREASED [None]
  - PALLOR [None]
  - ESCHERICHIA SEPSIS [None]
  - RASH ERYTHEMATOUS [None]
  - ESCHERICHIA URINARY TRACT INFECTION [None]
  - PYREXIA [None]
  - HAEMOGLOBIN DECREASED [None]
